FAERS Safety Report 22080744 (Version 1)
Quarter: 2023Q1

REPORT INFORMATION
  Report Type: Spontaneous
  Country: US (occurrence: US)
  Receive Date: 20230309
  Receipt Date: 20230309
  Transmission Date: 20230417
  Serious: Yes (Other)
  Sender: FDA-Public Use
  Company Number: US-GILEAD-2023-0619620

PATIENT
  Age: 64 Year
  Sex: Female
  Weight: 81.6 kg

DRUGS (1)
  1. YESCARTA [Suspect]
     Active Substance: AXICABTAGENE CILOLEUCEL
     Indication: B-cell lymphoma
     Dosage: UNK
     Route: 065
     Dates: start: 20220921, end: 20220921

REACTIONS (14)
  - Cytokine release syndrome [Unknown]
  - Immune effector cell-associated neurotoxicity syndrome [Unknown]
  - Fatigue [Unknown]
  - Hypotension [Unknown]
  - Chills [Unknown]
  - Tachycardia [Unknown]
  - Decreased appetite [Unknown]
  - Malaise [Unknown]
  - Myalgia [Unknown]
  - Hypervolaemia [Unknown]
  - Aphasia [Unknown]
  - Tremor [Unknown]
  - Headache [Unknown]
  - Memory impairment [Unknown]

NARRATIVE: CASE EVENT DATE: 20220922
